FAERS Safety Report 13802288 (Version 11)
Quarter: 2019Q2

REPORT INFORMATION
  Report Type: Report from Study
  Country: BR (occurrence: BR)
  Receive Date: 20170728
  Receipt Date: 20190620
  Transmission Date: 20190711
  Serious: Yes (Hospitalization, Other)
  Sender: FDA-Public Use
  Company Number: PHHY2017BR110293

PATIENT
  Age: 43 Year
  Sex: Female
  Weight: 67 kg

DRUGS (21)
  1. ACLASTA [Suspect]
     Active Substance: ZOLEDRONIC ACID
     Indication: OSTEOPOROSIS
     Dosage: 1 DF, (5MG/100ML) Q12MO
     Route: 042
     Dates: start: 20120228, end: 20180223
  2. ACLASTA [Suspect]
     Active Substance: ZOLEDRONIC ACID
     Dosage: 1 DF, (5MG/100ML) Q12MO
     Route: 042
     Dates: start: 201306
  3. ACLASTA [Suspect]
     Active Substance: ZOLEDRONIC ACID
     Dosage: 1 DF, (5MG/100ML) Q12MO
     Route: 042
     Dates: start: 2016
  4. CALCIUM [Suspect]
     Active Substance: CALCIUM
     Indication: BLOOD CALCIUM DECREASED
     Dosage: 3 G, QD
     Route: 065
  5. CALCITRIOL. [Concomitant]
     Active Substance: CALCITRIOL
     Indication: OSTEOPOROSIS
     Dosage: 8 DF, QD
     Route: 048
     Dates: start: 2010
  6. CYMBALTA [Concomitant]
     Active Substance: DULOXETINE HYDROCHLORIDE
     Indication: STRESS
     Dosage: 1 DF, QD FOR 4 YEARS
     Route: 048
  7. RIVOTRIL [Concomitant]
     Active Substance: CLONAZEPAM
     Indication: STRESS
     Dosage: 1 DF, QD
     Route: 048
     Dates: start: 2012
  8. ACLASTA [Suspect]
     Active Substance: ZOLEDRONIC ACID
     Dosage: 1 DF, (5MG/100ML) Q12MO
     Route: 042
     Dates: start: 20180223
  9. PANTOPRAZOLE [Concomitant]
     Active Substance: PANTOPRAZOLE
     Indication: PROPHYLAXIS
     Dosage: 1 DF, QD
     Route: 048
  10. RIVOTRIL [Concomitant]
     Active Substance: CLONAZEPAM
     Indication: DEPRESSION
  11. CAL D [Concomitant]
     Indication: OSTEOPOROSIS
     Dosage: 8 DF, QD
     Route: 048
     Dates: start: 2010
  12. MIOCALVEN [Concomitant]
     Indication: OSTEOPOROSIS
     Dosage: 8 DF, QD
     Route: 048
     Dates: start: 2010
  13. ACLASTA [Suspect]
     Active Substance: ZOLEDRONIC ACID
     Dosage: 1 DF, (5MG/100ML) Q12MO
     Route: 042
     Dates: start: 2014
  14. ACLASTA [Suspect]
     Active Substance: ZOLEDRONIC ACID
     Dosage: 1 DF, (5MG/100ML) Q12MO
     Route: 042
     Dates: start: 20150627
  15. OMEPRAZOLE. [Concomitant]
     Active Substance: OMEPRAZOLE
     Indication: PROPHYLAXIS
     Dosage: 1 DF, QD
     Route: 048
  16. MELATONIN [Concomitant]
     Active Substance: MELATONIN
     Indication: STRESS
     Dosage: 1 DF, QD
     Route: 048
  17. CYMBALTA [Concomitant]
     Active Substance: DULOXETINE HYDROCHLORIDE
     Indication: DEPRESSION
  18. PURAN [Concomitant]
     Active Substance: LEVOTHYROXINE SODIUM
     Indication: HORMONE THERAPY
     Dosage: 1 DF, QD
     Route: 048
     Dates: start: 2010
  19. ATORVASTATIN [Concomitant]
     Active Substance: ATORVASTATIN
     Indication: THYROID DISORDER
     Dosage: 1 DF, QD
     Route: 048
  20. MIOSAN [Concomitant]
     Active Substance: CYCLOBENZAPRINE
     Indication: PAIN
     Dosage: 1 DF, QD SINCE A LOMG TIME AGO
     Route: 048
  21. MELATONIN [Concomitant]
     Active Substance: MELATONIN
     Indication: DEPRESSION

REACTIONS (42)
  - Seizure [Recovered/Resolved]
  - Hepatic enzyme abnormal [Recovering/Resolving]
  - Dehydration [Unknown]
  - Hypocalcaemia [Recovering/Resolving]
  - Fall [Unknown]
  - Malignant polyp [Unknown]
  - Heart rate decreased [Not Recovered/Not Resolved]
  - Spinal pain [Not Recovered/Not Resolved]
  - Ulcer [Unknown]
  - Pulpitis dental [Recovering/Resolving]
  - Electrocardiogram QT prolonged [Unknown]
  - Blood test abnormal [Recovering/Resolving]
  - Blood creatinine abnormal [Recovering/Resolving]
  - Stress [Recovering/Resolving]
  - Nervousness [Recovering/Resolving]
  - Osteoporosis [Recovering/Resolving]
  - Loss of consciousness [Unknown]
  - Depression [Recovering/Resolving]
  - Atrioventricular block [Not Recovered/Not Resolved]
  - Concomitant disease aggravated [Unknown]
  - Oral pain [Unknown]
  - Toothache [Not Recovered/Not Resolved]
  - Gingival recession [Not Recovered/Not Resolved]
  - Haemorrhage [Recovering/Resolving]
  - Brain hypoxia [Recovering/Resolving]
  - Endometriosis [Not Recovered/Not Resolved]
  - Tooth loss [Not Recovered/Not Resolved]
  - Malaise [Not Recovered/Not Resolved]
  - Lumbar vertebral fracture [Recovering/Resolving]
  - Coeliac disease [Unknown]
  - Abdominal pain [Not Recovered/Not Resolved]
  - Leiomyoma [Recovering/Resolving]
  - Renal disorder [Recovering/Resolving]
  - Jaw fracture [Recovering/Resolving]
  - Osteopenia [Recovering/Resolving]
  - Syncope [Not Recovered/Not Resolved]
  - Inflammation [Unknown]
  - Cervical vertebral fracture [Unknown]
  - Memory impairment [Recovered/Resolved with Sequelae]
  - Muscular weakness [Not Recovered/Not Resolved]
  - Bone density decreased [Not Recovered/Not Resolved]
  - Quality of life decreased [Unknown]

NARRATIVE: CASE EVENT DATE: 2012
